FAERS Safety Report 23684784 (Version 1)
Quarter: 2024Q1

REPORT INFORMATION
  Report Type: Spontaneous
  Country: FR (occurrence: FR)
  Receive Date: 20240328
  Receipt Date: 20240328
  Transmission Date: 20240410
  Serious: Yes (Death)
  Sender: FDA-Public Use
  Company Number: None

PATIENT
  Age: 99 Year
  Sex: Male
  Weight: 55 kg

DRUGS (6)
  1. CANDESARTAN CILEXETIL [Suspect]
     Active Substance: CANDESARTAN CILEXETIL
     Indication: Wrong patient
     Dosage: CANDESARTAN CILEXETIL
     Route: 048
     Dates: start: 20240103, end: 20240103
  2. POTASSIUM CHLORIDE [Suspect]
     Active Substance: POTASSIUM CHLORIDE
     Indication: Wrong patient
     Dosage: 1.000DF
     Route: 048
     Dates: start: 20240103, end: 20240103
  3. LERCANIDIPINE HYDROCHLORIDE [Suspect]
     Active Substance: LERCANIDIPINE HYDROCHLORIDE
     Indication: Wrong patient
     Dosage: 50 MG
     Route: 048
     Dates: start: 20240103, end: 20240103
  4. LERCANIDIPINE HYDROCHLORIDE [Suspect]
     Active Substance: LERCANIDIPINE HYDROCHLORIDE
     Dosage: CHLORHYDRATE DE LERCANIDIPINE
     Route: 048
     Dates: start: 20240103, end: 20240103
  5. REVLIMID [Suspect]
     Active Substance: LENALIDOMIDE
     Indication: Wrong patient
     Dosage: 1.000DF
     Route: 048
     Dates: start: 20240103, end: 20240103
  6. VALACYCLOVIR HYDROCHLORIDE [Suspect]
     Active Substance: VALACYCLOVIR HYDROCHLORIDE
     Indication: Wrong patient
     Dosage: 500 MG
     Route: 048
     Dates: start: 20240103, end: 20240103

REACTIONS (1)
  - Hypotension [Fatal]

NARRATIVE: CASE EVENT DATE: 20240103
